FAERS Safety Report 24647733 (Version 1)
Quarter: 2024Q4

REPORT INFORMATION
  Report Type: Spontaneous
  Country: HU (occurrence: HU)
  Receive Date: 20241121
  Receipt Date: 20241121
  Transmission Date: 20250115
  Serious: Yes (Other)
  Sender: PFIZER
  Company Number: HU-PFIZER INC-PV202400150292

PATIENT
  Age: 81 Year
  Sex: Female

DRUGS (13)
  1. PALBOCICLIB [Suspect]
     Active Substance: PALBOCICLIB
     Indication: Breast cancer metastatic
     Dosage: UNK
     Dates: start: 2018
  2. PALBOCICLIB [Suspect]
     Active Substance: PALBOCICLIB
     Dosage: 75 MG, ONCE DAILY IN SCHEDULE 2/1 [ 2 WEEKS FOLLOWED BY 1 WEEK OFF TREATMENT]
     Dates: start: 2024
  3. FULVESTRANT [Suspect]
     Active Substance: FULVESTRANT
     Indication: Breast cancer metastatic
     Dosage: UNK
     Dates: start: 2018
  4. PRADAXA [Concomitant]
     Active Substance: DABIGATRAN ETEXILATE MESYLATE
     Dosage: 2X1 TABLET
  5. PANTOPRAZOLE SODIUM [Concomitant]
     Active Substance: PANTOPRAZOLE SODIUM
     Dosage: 1X40 MG
  6. ZOLEDRONIC ACID [Concomitant]
     Active Substance: ZOLEDRONIC ACID
     Dosage: EVERY 2-3 MONTHS, 3 MG
     Route: 042
  7. BISOPROLOL FUMARATE [Concomitant]
     Active Substance: BISOPROLOL FUMARATE
     Dosage: M: 2.5 MG (IN THE MORNING)
  8. FENTANYL [Concomitant]
     Active Substance: FENTANYL
     Dosage: 25 UG/24H
  9. FENTANYL [Concomitant]
     Active Substance: FENTANYL
     Dosage: 50 UG/24H
  10. ALGOFLEX [IBUPROFEN] [Concomitant]
     Dosage: 1-1, AS NEEDED
  11. RILMENIDINE [Concomitant]
     Active Substance: RILMENIDINE
     Dosage: E: 1 MG (IN THE EVENING)
  12. AMLODIPINE BESYLATE\INDAPAMIDE\PERINDOPRIL ARGININE [Concomitant]
     Active Substance: AMLODIPINE BESYLATE\INDAPAMIDE\PERINDOPRIL ARGININE
     Dosage: 2X1 TABLET (PERINDOPRIL + AMLODIPIN + INDAPAMID) 5/1,25/5
  13. CALCIVID [Concomitant]
     Dosage: 2X1

REACTIONS (3)
  - Cardiac ventricular thrombosis [Unknown]
  - Pulmonary embolism [Unknown]
  - Off label use [Unknown]

NARRATIVE: CASE EVENT DATE: 20220421
